FAERS Safety Report 23782701 (Version 1)
Quarter: 2024Q2

REPORT INFORMATION
  Report Type: Spontaneous
  Country: US (occurrence: None)
  Receive Date: 20240424
  Receipt Date: 20240424
  Transmission Date: 20240715
  Serious: Yes (Death)
  Sender: FDA-Public Use
  Company Number: None

PATIENT
  Age: 67 Year
  Sex: Female

DRUGS (6)
  1. ADBRY [Suspect]
     Active Substance: TRALOKINUMAB-LDRM
     Indication: Psoriasis
     Dosage: 300 MGEVERY 2 WEEKS SUBCUTANEOUS?
     Route: 058
     Dates: start: 20221220, end: 20240402
  2. Tylenol 500 mg tablets [Concomitant]
  3. Ammonium lactate 12 % cream [Concomitant]
  4. KETOCONAZOLE [Concomitant]
     Active Substance: KETOCONAZOLE
  5. LORAZEPAM [Concomitant]
     Active Substance: LORAZEPAM
  6. Trulicity 0.75 mg /0.5 ml inj [Concomitant]

REACTIONS (1)
  - Death [None]

NARRATIVE: CASE EVENT DATE: 20240402
